FAERS Safety Report 14873679 (Version 1)
Quarter: 2018Q2

REPORT INFORMATION
  Report Type: Spontaneous
  Country: GB (occurrence: GB)
  Receive Date: 20180510
  Receipt Date: 20180510
  Transmission Date: 20180711
  Serious: Yes (Hospitalization, Other)
  Sender: FDA-Public Use
  Company Number: GB-ABBVIE-18K-167-2290690-00

PATIENT
  Age: 26 Year
  Sex: Male
  Weight: 68.8 kg

DRUGS (1)
  1. HUMIRA [Suspect]
     Active Substance: ADALIMUMAB
     Indication: CROHN^S DISEASE
     Route: 058
     Dates: start: 20170626, end: 20171213

REACTIONS (6)
  - C-reactive protein increased [Unknown]
  - Pneumothorax [Unknown]
  - Splenomegaly [Unknown]
  - Tuberculosis [Recovered/Resolved]
  - White blood cell count increased [Unknown]
  - Pericardial effusion [Unknown]

NARRATIVE: CASE EVENT DATE: 20171213
